FAERS Safety Report 25090395 (Version 1)
Quarter: 2025Q1

REPORT INFORMATION
  Report Type: Spontaneous
  Country: US (occurrence: US)
  Receive Date: 20250318
  Receipt Date: 20250318
  Transmission Date: 20250409
  Serious: No
  Sender: ENDO
  Company Number: US-ENDO USA, INC.-2024-050156

PATIENT
  Age: 75 Year
  Sex: Male
  Weight: 83.447 kg

DRUGS (1)
  1. XIAFLEX [Suspect]
     Active Substance: COLLAGENASE CLOSTRIDIUM HISTOLYTICUM
     Indication: Dupuytren^s contracture
     Route: 051
     Dates: start: 20241007

REACTIONS (2)
  - Treatment failure [Not Recovered/Not Resolved]
  - Suspected product quality issue [Unknown]

NARRATIVE: CASE EVENT DATE: 20241001
